FAERS Safety Report 10285750 (Version 1)
Quarter: 2014Q3

REPORT INFORMATION
  Report Type: Spontaneous
  Country: US (occurrence: US)
  Receive Date: 20140709
  Receipt Date: 20140709
  Transmission Date: 20150326
  Serious: Yes (Hospitalization)
  Sender: FDA-Public Use
  Company Number: US-BRISTOL-MYERS SQUIBB COMPANY-21155239

PATIENT
  Age: 74 Year
  Sex: Male
  Weight: 97.5 kg

DRUGS (5)
  1. METOPROLOL [Concomitant]
     Active Substance: METOPROLOL
  2. COUMADIN [Suspect]
     Active Substance: WARFARIN SODIUM
     Dates: start: 200905
  3. AMIODARONE [Concomitant]
     Active Substance: AMIODARONE
  4. TAMSULOSIN [Concomitant]
     Active Substance: TAMSULOSIN
  5. LEVOTHYROXINE [Concomitant]
     Active Substance: LEVOTHYROXINE

REACTIONS (4)
  - Kidney infection [Recovered/Resolved]
  - Staphylococcal infection [Recovered/Resolved]
  - Thrombosis [Recovered/Resolved]
  - Localised infection [Recovered/Resolved]
